FAERS Safety Report 9469952 (Version 1)
Quarter: 2013Q3

REPORT INFORMATION
  Report Type: Report from Study
  Country: AU (occurrence: AU)
  Receive Date: 20130822
  Receipt Date: 20130822
  Transmission Date: 20140515
  Serious: Yes (Other)
  Sender: FDA-Public Use
  Company Number: PHHY2013AU090491

PATIENT
  Age: 79 Year
  Sex: Male

DRUGS (4)
  1. ACLASTA [Suspect]
     Dosage: 5 MG
     Route: 042
     Dates: start: 20120508
  2. ACLASTA [Suspect]
     Dosage: 5 MG
     Route: 042
     Dates: start: 20130819
  3. ALPHAPRESS [Concomitant]
     Indication: HYPERTENSION
  4. COVERSYL [Concomitant]

REACTIONS (4)
  - Myocardial infarction [Not Recovered/Not Resolved]
  - Hypertension [Not Recovered/Not Resolved]
  - Blood potassium decreased [Not Recovered/Not Resolved]
  - Heart rate decreased [Not Recovered/Not Resolved]
